FAERS Safety Report 8383121-0 (Version None)
Quarter: 2012Q2

REPORT INFORMATION
  Report Type: 
  Country: None (occurrence: None)
  Receive Date: 20120522
  Receipt Date: 20120508
  Transmission Date: 20120825
  Serious: Yes (Life-Threatening, Hospitalization)
  Sender: FDA-Public Use
  Company Number: IPC201205-000212

PATIENT
  Age: 60 Year
  Sex: Female

DRUGS (4)
  1. NIFEDIPINE [Suspect]
  2. AMLODIPINE BESYLATE [Suspect]
     Dosage: 10 MG, TWICE DAILY, ORAL
     Route: 048
  3. METOPROLOL TARTRATE [Suspect]
  4. ASPIRIN [Suspect]

REACTIONS (6)
  - SHOCK [None]
  - SMALL INTESTINAL OBSTRUCTION [None]
  - RESPIRATORY FAILURE [None]
  - ILEUS PARALYTIC [None]
  - TOXICITY TO VARIOUS AGENTS [None]
  - LACTIC ACIDOSIS [None]
